FAERS Safety Report 12497492 (Version 5)
Quarter: 2017Q3

REPORT INFORMATION
  Report Type: Report from Study
  Country: PL (occurrence: PL)
  Receive Date: 20160624
  Receipt Date: 20170713
  Transmission Date: 20171127
  Serious: Yes (Death, Hospitalization, Other)
  Sender: FDA-Public Use
  Company Number: PL-INCYTE CORPORATION-2016IN003703

PATIENT

DRUGS (11)
  1. CIPRINOL [Suspect]
     Active Substance: CIPROFLOXACIN
     Indication: BLOOD BILIRUBIN INCREASED
     Dosage: UNK
     Route: 042
     Dates: start: 20160418, end: 20160424
  2. DALACIN [Suspect]
     Active Substance: CLINDAMYCIN
     Indication: BLOOD BILIRUBIN INCREASED
     Dosage: UNKNOWN
     Route: 042
     Dates: start: 20160418, end: 20160419
  3. ACENOCUMAROL [Concomitant]
     Active Substance: ACENOCOUMAROL
     Indication: PRODUCT USED FOR UNKNOWN INDICATION
     Dosage: UNK
     Route: 065
     Dates: start: 20151202
  4. INSULIN MIXTARD [Concomitant]
     Active Substance: INSULIN HUMAN
     Indication: PRODUCT USED FOR UNKNOWN INDICATION
     Dosage: UNK
     Route: 065
     Dates: start: 2014
  5. JAKAVI [Suspect]
     Active Substance: RUXOLITINIB
     Dosage: 20 MG, BID
     Route: 048
     Dates: start: 20160104, end: 20160317
  6. NACL [Suspect]
     Active Substance: SODIUM CHLORIDE
     Indication: BLOOD BILIRUBIN INCREASED
     Dosage: UNKNOWN
     Route: 042
     Dates: start: 20160418, end: 20160424
  7. MILURIT [Concomitant]
     Active Substance: ALLOPURINOL
     Indication: PRODUCT USED FOR UNKNOWN INDICATION
     Dosage: UNK
     Route: 065
     Dates: start: 201507, end: 20160415
  8. JAKAVI [Suspect]
     Active Substance: RUXOLITINIB
     Dosage: 15 MG, BID
     Route: 048
     Dates: start: 20160318, end: 20160419
  9. JAKAVI [Suspect]
     Active Substance: RUXOLITINIB
     Indication: PRIMARY MYELOFIBROSIS
     Dosage: 20 MG, BID
     Route: 048
     Dates: start: 20151106, end: 20151106
  10. CONCOR COR [Concomitant]
     Active Substance: BISOPROLOL FUMARATE
     Indication: PRODUCT USED FOR UNKNOWN INDICATION
     Dosage: UNK
     Route: 065
     Dates: start: 20151117
  11. KALIUM [Suspect]
     Active Substance: POTASSIUM CHLORIDE
     Indication: BLOOD BILIRUBIN INCREASED
     Dosage: UNKNOWN
     Route: 042
     Dates: start: 20160418, end: 20160424

REACTIONS (10)
  - Cardiac disorder [Fatal]
  - Febrile neutropenia [Unknown]
  - Blood lactate dehydrogenase increased [Unknown]
  - Body temperature increased [Recovered/Resolved]
  - Alanine aminotransferase increased [Unknown]
  - Blood bilirubin increased [Recovered/Resolved]
  - Gamma-glutamyltransferase increased [Unknown]
  - Blood alkaline phosphatase increased [Unknown]
  - Jaundice [Unknown]
  - Vomiting [Recovered/Resolved]

NARRATIVE: CASE EVENT DATE: 20160416
